FAERS Safety Report 21915695 (Version 1)
Quarter: 2023Q1

REPORT INFORMATION
  Report Type: Spontaneous
  Country: US (occurrence: None)
  Receive Date: 20230125
  Receipt Date: 20230125
  Transmission Date: 20230417
  Serious: Yes (Death)
  Sender: FDA-Public Use
  Company Number: None

PATIENT
  Age: 58 Year
  Sex: Female

DRUGS (29)
  1. AIMOVIG [Suspect]
     Active Substance: ERENUMAB-AOOE
     Dosage: OTHER FREQUENCY : 28 DAYS;?
     Route: 058
  2. QULIPTA [Concomitant]
  3. AIMOVIG [Concomitant]
  4. DULOXETINE [Concomitant]
     Active Substance: DULOXETINE
  5. FERROUS SULFATE [Concomitant]
  6. LEVETIRACTAM [Concomitant]
  7. MONTELKAST [Concomitant]
  8. NIFEDIPINE [Concomitant]
  9. PANTOPRAZOLE [Concomitant]
     Active Substance: PANTOPRAZOLE
  10. RELISTOR [Concomitant]
  11. SENNA [Concomitant]
  12. TOPIRAMATE [Concomitant]
  13. VITAMIN B12 [Concomitant]
  14. VITAMIN D [Concomitant]
  15. ATORVASTATIN [Concomitant]
  16. CETIRIZINE [Concomitant]
  17. CREON [Concomitant]
  18. CYCLOBENZAPRINE [Concomitant]
  19. METOPROLOL [Concomitant]
  20. ER SUCCINATE [Concomitant]
  21. MIRTAZAPINE [Concomitant]
  22. APTIOM [Concomitant]
     Active Substance: ESLICARBAZEPINE ACETATE
  23. ETODOLAC [Concomitant]
  24. GABAPENTIN [Concomitant]
  25. HYDROXYZINE HCL [Concomitant]
  26. LEXAPRO [Concomitant]
  27. LINZESS [Concomitant]
  28. METOCLOPRAMIDE [Concomitant]
  29. PERCOCET [Concomitant]

REACTIONS (1)
  - Death [None]

NARRATIVE: CASE EVENT DATE: 20230122
